FAERS Safety Report 23573097 (Version 1)
Quarter: 2024Q1

REPORT INFORMATION
  Report Type: Report from Study
  Country: US (occurrence: US)
  Receive Date: 20240227
  Receipt Date: 20240227
  Transmission Date: 20240410
  Serious: Yes (Other)
  Sender: FDA-Public Use
  Company Number: US-ABBVIE-5654987

PATIENT
  Sex: Female

DRUGS (2)
  1. HUMIRA [Suspect]
     Active Substance: ADALIMUMAB
     Indication: Crohn^s disease
     Dosage: CITRATE FREE?FORM STRENGTH: 40 MILLIGRAM
     Route: 058
     Dates: start: 20080101, end: 20230701
  2. HUMIRA [Suspect]
     Active Substance: ADALIMUMAB
     Indication: Colitis ulcerative

REACTIONS (9)
  - Small intestinal obstruction [Unknown]
  - Alopecia [Unknown]
  - Vomiting [Unknown]
  - Therapeutic product effect decreased [Unknown]
  - Gastrointestinal inflammation [Unknown]
  - Amnesia [Unknown]
  - Malnutrition [Unknown]
  - Weight decreased [Unknown]
  - Brain injury [Unknown]
